FAERS Safety Report 4901880-3 (Version None)
Quarter: 2006Q1

REPORT INFORMATION
  Report Type: 
  Country: None (occurrence: None)
  Receive Date: 20060206
  Receipt Date: 20060105
  Transmission Date: 20060701
  Serious: Yes (Congenital Anomaly)
  Sender: FDA-Public Use
  Company Number: US-ABBOTT-06P-163-0321304-00

PATIENT
  Sex: Female
  Weight: 2.7 kg

DRUGS (3)
  1. KALETRA [Suspect]
     Indication: DRUG EXPOSURE DURING PREGNANCY
     Route: 065
  2. LAMIVUDINE AND STAVUDINE [Suspect]
     Indication: DRUG EXPOSURE DURING PREGNANCY
     Route: 065
  3. NELFINAVIR [Suspect]
     Indication: DRUG EXPOSURE DURING PREGNANCY
     Route: 065

REACTIONS (1)
  - FACIAL DYSMORPHISM [None]
